FAERS Safety Report 18541423 (Version 1)
Quarter: 2020Q4

REPORT INFORMATION
  Report Type: Spontaneous
  Country: NL (occurrence: DK)
  Receive Date: 20201124
  Receipt Date: 20201124
  Transmission Date: 20210114
  Serious: Yes (Life-Threatening)
  Sender: FDA-Public Use
  Company Number: DK-FRESENIUS KABI-FK202012351

PATIENT
  Age: 45 Year
  Sex: Male
  Weight: 73 kg

DRUGS (1)
  1. ROCURONIUMBROMID KABI 10 MG/ML [Suspect]
     Active Substance: ROCURONIUM BROMIDE
     Indication: MUSCLE RELAXANT THERAPY
     Dosage: STRENGTH: 10MG/ML?ROCURONIUM FRESENIUS KABI
     Route: 042
     Dates: start: 20201027, end: 20201027

REACTIONS (5)
  - Anaphylactic shock [Recovered/Resolved]
  - Respiratory disorder [Recovered/Resolved]
  - Rash [Recovered/Resolved]
  - Hypotension [Recovered/Resolved]
  - Eye swelling [Recovered/Resolved]

NARRATIVE: CASE EVENT DATE: 20201027
